FAERS Safety Report 11701513 (Version 1)
Quarter: 2015Q4

REPORT INFORMATION
  Report Type: Spontaneous
  Country: US (occurrence: US)
  Receive Date: 20151105
  Receipt Date: 20151105
  Transmission Date: 20160304
  Serious: No
  Sender: FDA-Public Use
  Company Number: US-BAYER-2015-461272

PATIENT
  Age: 19 Year
  Sex: Female
  Weight: 79.82 kg

DRUGS (2)
  1. CLARITIN [Suspect]
     Active Substance: LORATADINE
     Indication: PAIN
  2. CLARITIN [Suspect]
     Active Substance: LORATADINE
     Indication: PAIN
     Dosage: 2 DF, UNK

REACTIONS (2)
  - Product use issue [Unknown]
  - Extra dose administered [Unknown]
